FAERS Safety Report 8581216-X (Version None)
Quarter: 2012Q3

REPORT INFORMATION
  Report Type: 
  Country: None (occurrence: None)
  Receive Date: 20120809
  Receipt Date: 20120802
  Transmission Date: 20120928
  Serious: Yes (Hospitalization)
  Sender: FDA-Public Use
  Company Number: PHHO2012HU005260

PATIENT
  Sex: Male
  Weight: 83.3 kg

DRUGS (11)
  1. RILMENIDINE [Concomitant]
     Dosage: 1 MG, UNK
  2. ESIDRIX [Suspect]
     Indication: CARDIOVASCULAR DISORDER
     Dosage: DOUBLE BLIND
     Route: 048
  3. AMLODIPINE [Concomitant]
     Dosage: 5 MG, UNK
  4. BIGUANIDES [Concomitant]
  5. ONGLYZA [Concomitant]
  6. PERINDOPRIL ERBUMINE [Concomitant]
     Dosage: 20 MG, UNK
  7. TENAXUM [Concomitant]
     Dosage: 1 MG, UNK
  8. ALISKIREN [Suspect]
     Indication: CARDIOVASCULAR DISORDER
     Dosage: UNK
     Route: 048
  9. ANTIHYPERTENSIVE DRUGS [Concomitant]
     Dosage: 8 MG, UNK
  10. ATORVASTATIN [Concomitant]
     Dosage: UNK
  11. BISOPROLOL FUMARATE [Concomitant]

REACTIONS (1)
  - BASAL CELL CARCINOMA [None]
